FAERS Safety Report 9859280 (Version 5)
Quarter: 2014Q2

REPORT INFORMATION
  Report Type: Spontaneous
  Country: JP (occurrence: JP)
  Receive Date: 20140131
  Receipt Date: 20140513
  Transmission Date: 20141212
  Serious: No
  Sender: FDA-Public Use
  Company Number: JP-VERTEX PHARMACEUTICALS INC-2013-011306

PATIENT
  Age: 56 Year
  Sex: Male

DRUGS (10)
  1. TELAVIC [Suspect]
     Indication: CHRONIC HEPATITIS C
     Dosage: 2250 MG, QD
     Route: 048
     Dates: start: 20121126, end: 20121231
  2. TELAVIC [Suspect]
     Dosage: 1500 MG, QD
     Route: 048
     Dates: start: 20130121, end: 20130325
  3. RIBAVIRIN [Suspect]
     Indication: CHRONIC HEPATITIS C
     Dosage: 800 MG, QD
     Route: 048
     Dates: start: 20121126, end: 20121231
  4. RIBAVIRIN [Suspect]
     Dosage: 600 MG, QD
     Route: 048
     Dates: start: 20130121, end: 20130303
  5. RIBAVIRIN [Suspect]
     Dosage: 400 MG, QD
     Route: 048
     Dates: start: 20130304, end: 20130324
  6. RIBAVIRIN [Suspect]
     Dosage: 200 MG, QD
     Route: 048
     Dates: start: 20130325, end: 20130331
  7. RIBAVIRIN [Suspect]
     Dosage: 400 MG, QD
     Route: 048
     Dates: start: 20130408, end: 20130429
  8. RIBAVIRIN [Suspect]
     Dosage: 600 MG, QD
     Route: 048
     Dates: start: 20130430, end: 20130526
  9. PEGINTERFERON ALFA-2B [Concomitant]
     Indication: CHRONIC HEPATITIS C
     Dosage: 1.25 ?G/KG, QW
     Route: 058
     Dates: start: 20121126, end: 20130325
  10. PEGINTERFERON ALFA-2B [Concomitant]
     Dosage: 1.25 ?G/KG, QW
     Route: 058
     Dates: start: 20130408, end: 20130520

REACTIONS (5)
  - IgA nephropathy [Recovering/Resolving]
  - Rash [Recovered/Resolved]
  - Hyperuricaemia [Recovered/Resolved]
  - Rash [Recovered/Resolved]
  - Haemoglobin decreased [Recovered/Resolved]
